FAERS Safety Report 16346839 (Version 1)
Quarter: 2019Q2

REPORT INFORMATION
  Report Type: Spontaneous
  Country: US (occurrence: US)
  Receive Date: 20190523
  Receipt Date: 20190523
  Transmission Date: 20190711
  Serious: No
  Sender: FDA-Public Use
  Company Number: US-BAYER-2019-097822

PATIENT
  Age: 73 Year
  Sex: Female
  Weight: 56 kg

DRUGS (2)
  1. GADAVIST [Suspect]
     Active Substance: GADOBUTROL
     Indication: CORONARY ARTERY DISEASE
  2. GADAVIST [Suspect]
     Active Substance: GADOBUTROL
     Indication: NUCLEAR MAGNETIC RESONANCE IMAGING HEART
     Dosage: 5.6 ML, ONCE
     Route: 042
     Dates: start: 20190507, end: 20190507

REACTIONS (2)
  - Aphonia [Not Recovered/Not Resolved]
  - Throat irritation [Not Recovered/Not Resolved]

NARRATIVE: CASE EVENT DATE: 20190507
